FAERS Safety Report 12473715 (Version 2)
Quarter: 2016Q2

REPORT INFORMATION
  Report Type: Spontaneous
  Country: JP (occurrence: JP)
  Receive Date: 20160616
  Receipt Date: 20160622
  Transmission Date: 20160815
  Serious: Yes (Life-Threatening, Hospitalization)
  Sender: FDA-Public Use
  Company Number: PHJP2015JP022167

PATIENT
  Age: 75 Year
  Sex: Male
  Weight: 52 kg

DRUGS (20)
  1. NEORAL [Interacting]
     Active Substance: CYCLOSPORINE
     Dosage: 90 MG, QD
     Route: 048
     Dates: start: 20151015, end: 20151112
  2. NEORAL [Interacting]
     Active Substance: CYCLOSPORINE
     Dosage: 70 MG, QD
     Route: 048
     Dates: start: 20151113, end: 20151126
  3. NEORAL [Interacting]
     Active Substance: CYCLOSPORINE
     Dosage: 40 MG, QD
     Route: 048
     Dates: start: 20151209
  4. PREDNISOLONE. [Suspect]
     Active Substance: PREDNISOLONE
     Dosage: 15 MG, QD
     Route: 048
     Dates: start: 20131201
  5. VFEND [Interacting]
     Active Substance: VORICONAZOLE
     Dosage: 300 MG, QD
     Route: 048
     Dates: start: 20151218
  6. PARIET [Concomitant]
     Active Substance: RABEPRAZOLE SODIUM
     Indication: PROPHYLAXIS
     Dosage: 10 MG, QD
     Route: 048
     Dates: start: 20130402
  7. SULFAMETHOXAZOLE AND TRIMETHOPRIM [Concomitant]
     Active Substance: SULFAMETHOXAZOLE\TRIMETHOPRIM
     Indication: PRODUCT USED FOR UNKNOWN INDICATION
     Dosage: 1 DF, QD
     Route: 048
     Dates: start: 20130409
  8. BONALON [Concomitant]
     Active Substance: ALENDRONATE SODIUM
     Indication: PROPHYLAXIS
     Dosage: 35 MG, QD
     Route: 048
     Dates: start: 20130426
  9. NEORAL [Suspect]
     Active Substance: CYCLOSPORINE
     Indication: INTERSTITIAL LUNG DISEASE
     Dosage: 100 MG, QD
     Route: 048
     Dates: start: 20130418, end: 20151014
  10. TULOBUTEROL [Concomitant]
     Active Substance: TULOBUTEROL
     Indication: EMPHYSEMA
     Dosage: 2 MG, QD
     Route: 062
     Dates: start: 20151015
  11. OXYGEN. [Concomitant]
     Active Substance: OXYGEN
     Indication: EMPHYSEMA
     Dosage: UNK
     Route: 065
  12. VFEND [Interacting]
     Active Substance: VORICONAZOLE
     Indication: BRONCHOPULMONARY ASPERGILLOSIS
     Dosage: 400 MG, QD
     Route: 048
     Dates: start: 20151112, end: 20151125
  13. SENNOSIDE [Concomitant]
     Active Substance: SENNOSIDES
     Indication: CONSTIPATION
     Dosage: 24 MG, PRN
     Route: 048
     Dates: start: 20141226
  14. BROCIN-CODEINE [Concomitant]
     Indication: COUGH
     Dosage: 1.5 MG, TID
     Route: 048
     Dates: start: 20141113
  15. SODIUM CHLORIDE. [Concomitant]
     Active Substance: SODIUM CHLORIDE
     Indication: HYPONATRAEMIA
     Dosage: UNK
     Route: 065
  16. VFEND [Interacting]
     Active Substance: VORICONAZOLE
     Dosage: 200 MG, QD
     Route: 048
     Dates: start: 20151209, end: 20151217
  17. ASTOMIN [Concomitant]
     Active Substance: DIMEMORFAN
     Indication: COUGH
     Dosage: 10 MG, TID
     Route: 048
     Dates: start: 20130416
  18. NEORAL [Interacting]
     Active Substance: CYCLOSPORINE
     Dosage: 50 MG, QD
     Route: 048
     Dates: start: 20151127, end: 20151208
  19. PREDNISOLONE. [Suspect]
     Active Substance: PREDNISOLONE
     Indication: INTERSTITIAL LUNG DISEASE
     Dosage: 40 MG, QD
     Route: 048
     Dates: start: 20130403, end: 20131130
  20. VFEND [Interacting]
     Active Substance: VORICONAZOLE
     Dosage: 300 MG, QD
     Route: 048
     Dates: start: 20151126, end: 20151201

REACTIONS (9)
  - Drug interaction [Unknown]
  - Bronchopulmonary aspergillosis [Not Recovered/Not Resolved]
  - Movement disorder [Recovering/Resolving]
  - Respiratory tract infection [Recovering/Resolving]
  - Immunosuppressant drug level increased [Unknown]
  - Product use issue [Unknown]
  - Malaise [Recovering/Resolving]
  - Hepatic function abnormal [Recovered/Resolved]
  - Interstitial lung disease [Recovering/Resolving]

NARRATIVE: CASE EVENT DATE: 201505
